FAERS Safety Report 19827159 (Version 2)
Quarter: 2021Q3

REPORT INFORMATION
  Report Type: Report from Study
  Country: None (occurrence: US)
  Receive Date: 20210914
  Receipt Date: 20210922
  Transmission Date: 20211014
  Serious: Yes (Other)
  Sender: FDA-Public Use
  Company Number: US-ABBVIE-21K-163-4074238-00

PATIENT
  Age: 66 Year
  Sex: Female
  Weight: 94.43 kg

DRUGS (2)
  1. SKYRIZI [Suspect]
     Active Substance: RISANKIZUMAB-RZAA
     Indication: PSORIASIS
     Route: 058
     Dates: start: 20210618
  2. COVID?19 VACCINE [Concomitant]
     Indication: COVID-19 IMMUNISATION
     Dosage: JOHNSON AND JOHNSON
     Route: 030
     Dates: start: 20210528, end: 20210528

REACTIONS (10)
  - Skin cancer [Recovering/Resolving]
  - Nasopharyngitis [Recovering/Resolving]
  - Facial pain [Recovering/Resolving]
  - Haemorrhage [Recovered/Resolved]
  - Skin disorder [Recovering/Resolving]
  - Skin ulcer [Unknown]
  - Psoriasis [Recovering/Resolving]
  - Sinusitis [Recovering/Resolving]
  - Unevaluable event [Not Recovered/Not Resolved]
  - Psoriasis [Recovered/Resolved]

NARRATIVE: CASE EVENT DATE: 2021
